FAERS Safety Report 10415387 (Version 2)
Quarter: 2014Q3

REPORT INFORMATION
  Report Type: Spontaneous
  Country: US (occurrence: US)
  Receive Date: 20140828
  Receipt Date: 20140828
  Transmission Date: 20150326
  Serious: Yes (Other)
  Sender: FDA-Public Use
  Company Number: PHEH2014US009899

PATIENT
  Age: 78 Year
  Sex: Female
  Weight: 60.32 kg

DRUGS (7)
  1. QUETIAPINE [Concomitant]
     Active Substance: QUETIAPINE
     Dosage: UNK UKN, UNK
  2. DEXILANT [Concomitant]
     Active Substance: DEXLANSOPRAZOLE
     Dosage: UNK UKN, UNK
  3. CRESTOR [Concomitant]
     Active Substance: ROSUVASTATIN CALCIUM
     Dosage: UNK UKN, UNK
  4. EXELON [Suspect]
     Active Substance: RIVASTIGMINE TARTRATE
     Indication: DEMENTIA
     Dosage: 4.5 MG
  5. EXELON PATCH [Suspect]
     Active Substance: RIVASTIGMINE
     Dosage: 9.5 MG, QD
     Route: 062
  6. EXELON PATCH [Suspect]
     Active Substance: RIVASTIGMINE
     Indication: DEMENTIA
     Dosage: 4.6 MG, QD
     Route: 062
  7. STOOL SOFTENER [Concomitant]
     Active Substance: DOCUSATE CALCIUM
     Dosage: UNK UKN, UNK

REACTIONS (24)
  - Loss of consciousness [Unknown]
  - Musculoskeletal pain [Unknown]
  - Headache [Unknown]
  - Rash macular [Unknown]
  - Vitamin D decreased [Unknown]
  - Malaise [Unknown]
  - Erythema [Unknown]
  - Amnesia [Unknown]
  - Skin burning sensation [Unknown]
  - Neck pain [Unknown]
  - Gastrooesophageal reflux disease [Unknown]
  - Sleep disorder [Unknown]
  - Constipation [Unknown]
  - Urinary incontinence [Unknown]
  - Vomiting [Unknown]
  - Application site hypersensitivity [Unknown]
  - Oedema mucosal [Unknown]
  - Muscle spasms [Unknown]
  - Weight decreased [Unknown]
  - Wrong technique in drug usage process [Unknown]
  - Type 2 diabetes mellitus [Unknown]
  - Pneumonia [Unknown]
  - Application site erythema [Not Recovered/Not Resolved]
  - Application site pruritus [Not Recovered/Not Resolved]

NARRATIVE: CASE EVENT DATE: 20140421
